FAERS Safety Report 13518804 (Version 2)
Quarter: 2017Q2

REPORT INFORMATION
  Report Type: Report from Study
  Country: US (occurrence: US)
  Receive Date: 20170505
  Receipt Date: 20170621
  Transmission Date: 20170830
  Serious: Yes (Other)
  Sender: FDA-Public Use
  Company Number: US-PFIZER INC-2017194817

PATIENT
  Age: 72 Year
  Sex: Female

DRUGS (1)
  1. IBRANCE [Suspect]
     Active Substance: PALBOCICLIB
     Indication: BREAST CANCER
     Dosage: 125 MG, DAILY
     Route: 048
     Dates: start: 20151229

REACTIONS (17)
  - Decreased appetite [Unknown]
  - Renal disorder [Unknown]
  - Weight decreased [Unknown]
  - Fatigue [Unknown]
  - Headache [Unknown]
  - Oedema peripheral [Unknown]
  - Bone marrow failure [Unknown]
  - Night sweats [Unknown]
  - Chills [Unknown]
  - Epistaxis [Unknown]
  - Vomiting [Unknown]
  - Alopecia [Unknown]
  - Skin discolouration [Unknown]
  - Dizziness [Unknown]
  - Nausea [Unknown]
  - Gingivitis [Unknown]
  - Abdominal discomfort [Unknown]
